FAERS Safety Report 9515063 (Version 3)
Quarter: 2013Q4

REPORT INFORMATION
  Report Type: Spontaneous
  Country: JP (occurrence: JP)
  Receive Date: 20130911
  Receipt Date: 20131129
  Transmission Date: 20140711
  Serious: Yes (Hospitalization, Other)
  Sender: FDA-Public Use
  Company Number: JP-JNJFOC-20130903510

PATIENT
  Age: 67 Year
  Sex: Female
  Weight: 44 kg

DRUGS (11)
  1. REMICADE [Suspect]
     Indication: RHEUMATOID ARTHRITIS
     Dosage: THE PATIENT RECEIVED 3 INFUSIONS
     Route: 042
     Dates: start: 20130806
  2. REMICADE [Suspect]
     Indication: RHEUMATOID ARTHRITIS
     Route: 042
     Dates: start: 20130624
  3. REMICADE [Suspect]
     Indication: RHEUMATOID ARTHRITIS
     Route: 042
     Dates: start: 20130708
  4. METHOTREXATE [Suspect]
     Indication: RHEUMATOID ARTHRITIS
     Route: 048
     Dates: start: 20111011, end: 20130824
  5. FOLIAMIN [Concomitant]
     Indication: INFECTION PROPHYLAXIS
     Route: 048
     Dates: start: 20111011, end: 20130824
  6. PREDNISOLONE [Concomitant]
     Indication: RHEUMATOID ARTHRITIS
     Route: 048
     Dates: start: 20111011, end: 20130824
  7. NORVASC [Concomitant]
     Indication: HYPERTENSION
     Route: 048
     Dates: start: 20111011, end: 20130824
  8. ACINON [Concomitant]
     Indication: GASTRITIS
     Dosage: 150 MG, 75 MG
     Route: 048
     Dates: start: 20111011, end: 20130824
  9. DIOVAN [Concomitant]
     Indication: HYPERTENSION
     Dosage: 160 MG, 160 MG
     Route: 048
     Dates: start: 20111011, end: 20130824
  10. ACTONEL [Concomitant]
     Indication: OSTEOPOROSIS
     Route: 048
     Dates: start: 20111011, end: 20130824
  11. NEUROTROPIN [Concomitant]
     Indication: NEURALGIA
     Dosage: 8IU, 4IU
     Route: 048
     Dates: start: 20130307, end: 20130824

REACTIONS (2)
  - Pneumocystis jirovecii pneumonia [Recovered/Resolved]
  - Latent tuberculosis [Unknown]
